FAERS Safety Report 7238364-6 (Version None)
Quarter: 2011Q1

REPORT INFORMATION
  Report Type: 
  Country: None (occurrence: None)
  Receive Date: 20110121
  Receipt Date: 20110112
  Transmission Date: 20110831
  Serious: Yes (Hospitalization)
  Sender: FDA-Public Use
  Company Number: US-ASTRAZENECA-2011SE02078

PATIENT
  Age: 27150 Day
  Sex: Female
  Weight: 58.1 kg

DRUGS (8)
  1. SPIRIVA [Concomitant]
     Indication: CHRONIC OBSTRUCTIVE PULMONARY DISEASE
  2. CELEXA [Concomitant]
  3. LISINOPRIL AND HYDROCHLOROTHIAZIDE [Concomitant]
     Indication: HYPERTENSION
  4. H1N1 VACCINE [Concomitant]
  5. SYMBICORT [Suspect]
     Indication: CHRONIC OBSTRUCTIVE PULMONARY DISEASE
     Dosage: 320 MCG TWICE A DAY
     Route: 055
     Dates: start: 20090601
  6. COUMADIN [Concomitant]
  7. ZANTAC [Concomitant]
     Indication: GASTRIC DISORDER
  8. XANAX [Concomitant]
     Indication: ANXIETY

REACTIONS (3)
  - FEELING ABNORMAL [None]
  - CHRONIC OBSTRUCTIVE PULMONARY DISEASE [None]
  - DRUG INEFFECTIVE [None]
